FAERS Safety Report 6386128-8 (Version None)
Quarter: 2009Q4

REPORT INFORMATION
  Report Type: 
  Country: None (occurrence: None)
  Receive Date: 20091002
  Receipt Date: 20081203
  Transmission Date: 20100525
  Serious: No
  Sender: FDA-Public Use
  Company Number: US-ASTRAZENECA-2008UW26934

PATIENT
  Age: 65 Year
  Sex: Female

DRUGS (6)
  1. ARIMIDEX [Suspect]
     Indication: BREAST CANCER STAGE I
     Route: 048
  2. CIPRO [Concomitant]
  3. PHENAZOPYRIDINE HCL TAB [Concomitant]
  4. DIFLUCAN [Concomitant]
  5. CALTRATE [Concomitant]
  6. STEROIDS [Concomitant]

REACTIONS (6)
  - BREATH ODOUR [None]
  - DYSGEUSIA [None]
  - LIP DISORDER [None]
  - PAROSMIA [None]
  - RASH [None]
  - URINARY TRACT INFECTION [None]
